FAERS Safety Report 7579937-0 (Version None)
Quarter: 2011Q2

REPORT INFORMATION
  Report Type: 
  Country: None (occurrence: None)
  Receive Date: 20110629
  Receipt Date: 20110620
  Transmission Date: 20111010
  Serious: Yes (Other)
  Sender: FDA-Public Use
  Company Number: DK-ASTRAZENECA-2011SE37726

PATIENT
  Age: 53 Year
  Sex: Female

DRUGS (1)
  1. ENTOCORT EC [Suspect]
     Indication: MUCOSAL INFECTION
     Route: 048
     Dates: start: 20071025, end: 20091109

REACTIONS (3)
  - MENTAL DISORDER [None]
  - OEDEMA PERIPHERAL [None]
  - HAEMATOMA [None]
